FAERS Safety Report 4701687-6 (Version None)
Quarter: 2005Q2

REPORT INFORMATION
  Report Type: 
  Country: None (occurrence: None)
  Receive Date: 20050628
  Receipt Date: 19970715
  Transmission Date: 20051028
  Serious: Yes (Other)
  Sender: FDA-Public Use
  Company Number: PHHO1997BR04093

PATIENT
  Age: 42 Year
  Sex: Male
  Weight: 74 kg

DRUGS (1)
  1. DIOVAN [Suspect]
     Dosage: 80 MG
     Dates: start: 19970707

REACTIONS (1)
  - ERYTHEMA MULTIFORME [None]
